FAERS Safety Report 10177529 (Version 1)
Quarter: 2014Q2

REPORT INFORMATION
  Report Type: Spontaneous
  Country: US (occurrence: US)
  Receive Date: 20140516
  Receipt Date: 20140516
  Transmission Date: 20141212
  Serious: Yes (Other)
  Sender: FDA-Public Use
  Company Number: US-ASTRAZENECA-2014SE32410

PATIENT
  Age: 81 Year
  Sex: Female
  Weight: 62.6 kg

DRUGS (13)
  1. NEXIUM [Suspect]
     Indication: IRRITABLE BOWEL SYNDROME
     Route: 048
     Dates: end: 2013
  2. NEXIUM [Suspect]
     Indication: POLYP
     Route: 048
     Dates: end: 2013
  3. NEXIUM [Suspect]
     Indication: GASTROOESOPHAGEAL REFLUX DISEASE
     Route: 048
     Dates: end: 2013
  4. NEXIUM [Suspect]
     Indication: HIATUS HERNIA
     Route: 048
     Dates: end: 2013
  5. PRILOSEC UNSPECIFIED [Suspect]
     Indication: IRRITABLE BOWEL SYNDROME
     Dosage: DAILY
     Route: 048
  6. PRILOSEC UNSPECIFIED [Suspect]
     Indication: POLYP
     Dosage: DAILY
     Route: 048
  7. PRILOSEC UNSPECIFIED [Suspect]
     Indication: GASTROOESOPHAGEAL REFLUX DISEASE
     Dosage: DAILY
     Route: 048
  8. EPIDURALS [Concomitant]
     Indication: BACK DISORDER
     Dosage: UNK
     Route: 050
  9. HYDROCODONE [Concomitant]
     Indication: BACK DISORDER
     Dosage: UNK
     Route: 048
  10. FENTANYL PATCHES [Concomitant]
     Indication: BACK DISORDER
     Dosage: UNK
     Route: 061
  11. PROTONIX [Concomitant]
  12. SIMETHICONE [Concomitant]
  13. MAALOX [Concomitant]

REACTIONS (17)
  - Gastric disorder [Unknown]
  - Ear haemorrhage [Unknown]
  - Skin disorder [Recovered/Resolved]
  - Skin discolouration [Unknown]
  - Weight decreased [Recovered/Resolved]
  - Influenza [Recovered/Resolved]
  - Breast discomfort [Unknown]
  - Gastric ulcer [Unknown]
  - Gastrooesophageal sphincter insufficiency [Unknown]
  - Fungal infection [Unknown]
  - Gastric polyps [Unknown]
  - Feeling abnormal [Not Recovered/Not Resolved]
  - Malaise [Recovered/Resolved]
  - Eczema [Unknown]
  - Rash [Unknown]
  - Off label use [Unknown]
  - Drug ineffective [Unknown]
